FAERS Safety Report 4742675-3 (Version None)
Quarter: 2005Q3

REPORT INFORMATION
  Report Type: 
  Country: None (occurrence: None)
  Receive Date: 20050808
  Receipt Date: 20050721
  Transmission Date: 20060218
  Serious: Yes (Other)
  Sender: FDA-Public Use
  Company Number: USA0507103493

PATIENT
  Age: 88 Year
  Sex: Female

DRUGS (4)
  1. EVISTA [Suspect]
     Dosage: 60 MG DAY
     Dates: start: 20000101
  2. FOSAMAX [Concomitant]
  3. MIACALCIN [Concomitant]
  4. LEVOXYL [Concomitant]

REACTIONS (3)
  - EYE DISORDER [None]
  - THROMBOSIS [None]
  - VISUAL FIELD DEFECT [None]
